FAERS Safety Report 8493781 (Version 3)
Quarter: 2013Q2

REPORT INFORMATION
  Report Type: Spontaneous
  Country: IE (occurrence: IE)
  Receive Date: 20120404
  Receipt Date: 20130612
  Transmission Date: 20140414
  Serious: Yes (Other)
  Sender: FDA-Public Use
  Company Number: IE-UCBSA-054282

PATIENT
  Age: 45 Year
  Sex: Female
  Weight: 63.1 kg

DRUGS (3)
  1. CIMZIA [Suspect]
     Indication: RHEUMATOID ARTHRITIS
     Dosage: ALTERNATE WEEKS (RECEIVED 3 DOSES)
     Route: 058
     Dates: start: 20120217, end: 20120316
  2. METHOTREXATE [Concomitant]
     Route: 048
     Dates: start: 20020212
  3. FOLIC ACID [Concomitant]
     Dosage: FREQUENCY: 6/7 A WEEK
     Route: 048
     Dates: start: 20020212

REACTIONS (1)
  - Systemic lupus erythematosus rash [Recovered/Resolved]
